FAERS Safety Report 7352863-8 (Version None)
Quarter: 2011Q1

REPORT INFORMATION
  Report Type: 
  Country: None (occurrence: None)
  Receive Date: 20110315
  Receipt Date: 20110302
  Transmission Date: 20110831
  Serious: Yes (Other)
  Sender: FDA-Public Use
  Company Number: US-BAYER-2011-019646

PATIENT
  Sex: Male

DRUGS (1)
  1. AVELOX [Suspect]
     Indication: SINUSITIS BACTERIAL
     Dosage: 400 MG/L, UNK
     Route: 048
     Dates: start: 20110301, end: 20110301

REACTIONS (4)
  - THROAT TIGHTNESS [None]
  - RASH GENERALISED [None]
  - HYPERSENSITIVITY [None]
  - DYSPNOEA [None]
